FAERS Safety Report 4477341-5 (Version None)
Quarter: 2004Q4

REPORT INFORMATION
  Report Type: 
  Country: None (occurrence: None)
  Receive Date: 20041013
  Receipt Date: 20040927
  Transmission Date: 20050328
  Serious: Yes (Other)
  Sender: FDA-Public Use
  Company Number: DSA_25079_2004

PATIENT

DRUGS (2)
  1. RENIVACE [Suspect]
     Dosage: DF PO
     Route: 048
  2. CILASTATIN SODIUM W/IMIPENEM [Suspect]
     Dosage: DF IV
     Route: 042

REACTIONS (1)
  - BONE MARROW DEPRESSION [None]
